FAERS Safety Report 20869023 (Version 1)
Quarter: 2022Q2

REPORT INFORMATION
  Report Type: Report from Study
  Country: US (occurrence: US)
  Receive Date: 20220524
  Receipt Date: 20220524
  Transmission Date: 20220721
  Serious: Yes (Hospitalization, Other)
  Sender: FDA-Public Use
  Company Number: US-ABBVIE-22K-163-4408010-00

PATIENT
  Sex: Male

DRUGS (1)
  1. HUMIRA [Suspect]
     Active Substance: ADALIMUMAB
     Indication: Hidradenitis
     Dosage: CF
     Route: 058

REACTIONS (6)
  - Transfusion [Unknown]
  - Infection [Unknown]
  - Weight decreased [Recovering/Resolving]
  - Wound drainage [Unknown]
  - Diabetes mellitus [Not Recovered/Not Resolved]
  - Hidradenitis [Not Recovered/Not Resolved]
